FAERS Safety Report 8531323-2 (Version None)
Quarter: 2012Q3

REPORT INFORMATION
  Report Type: 
  Country: None (occurrence: None)
  Receive Date: 20120710
  Receipt Date: 20120628
  Transmission Date: 20120928
  Serious: Yes (Other)
  Sender: FDA-Public Use
  Company Number: 2010000544

PATIENT
  Age: 80 Year
  Sex: Female

DRUGS (1)
  1. TARCEVA [Suspect]
     Indication: LUNG NEOPLASM MALIGNANT
     Dosage: 100 MG, UID/QD, ORAL
     Route: 048
     Dates: start: 20090820

REACTIONS (3)
  - INCORRECT DOSE ADMINISTERED [None]
  - SPINAL COMPRESSION FRACTURE [None]
  - FALL [None]
